FAERS Safety Report 8339980-0 (Version None)
Quarter: 2012Q2

REPORT INFORMATION
  Report Type: 
  Country: None (occurrence: None)
  Receive Date: 20120507
  Receipt Date: 20120430
  Transmission Date: 20120825
  Serious: Yes (Death, Hospitalization, Other)
  Sender: FDA-Public Use
  Company Number: US-ASTELLAS-2012US003938

PATIENT
  Sex: Female
  Weight: 50 kg

DRUGS (22)
  1. ERLOTINIB HYDROCHLORIDE [Suspect]
     Indication: THYMOMA
     Dosage: 150 MG, UID/QD, CYCLE 21 DAYS
     Route: 048
     Dates: start: 20120208, end: 20120228
  2. ERLOTINIB HYDROCHLORIDE [Suspect]
     Dosage: 100 MG, UID/QD
     Route: 048
     Dates: end: 20120301
  3. ZOLPIDEM [Concomitant]
     Indication: INSOMNIA
     Dosage: 10 MG, DAILY AT BEDTIME PRN
     Route: 048
  4. DOCUSATE [Concomitant]
     Indication: PRODUCT USED FOR UNKNOWN INDICATION
     Dosage: 100 MG, BID
     Route: 065
  5. LYRICA [Concomitant]
     Indication: PRODUCT USED FOR UNKNOWN INDICATION
     Dosage: 50 MG, BID
     Route: 065
  6. BENADRYL [Concomitant]
     Indication: BLOOD PRODUCT TRANSFUSION
     Dosage: UNK
     Route: 065
  7. FENTANYL CITRATE [Concomitant]
     Indication: PRODUCT USED FOR UNKNOWN INDICATION
     Dosage: 25 UG, UNKNOWN/D
     Route: 062
     Dates: start: 20120203, end: 20120207
  8. PREGABALIN [Concomitant]
     Indication: PRODUCT USED FOR UNKNOWN INDICATION
     Dosage: 50 MG, BID
     Route: 048
  9. OMEPRAZOLE [Concomitant]
     Indication: PRODUCT USED FOR UNKNOWN INDICATION
     Dosage: 20 MG, UID/QD
     Route: 048
  10. FENTANYL CITRATE [Concomitant]
     Dosage: 12 UG, Q3D
     Route: 062
  11. POTASSIUM CHLORIDE [Concomitant]
     Indication: PRODUCT USED FOR UNKNOWN INDICATION
     Dosage: 20 MEQ, UID/QD
     Route: 048
  12. SENNA-MINT WAF [Concomitant]
     Indication: PRODUCT USED FOR UNKNOWN INDICATION
     Dosage: 17.2 MG, BID
     Route: 048
  13. ACETAMINOPHEN [Concomitant]
     Indication: BLOOD PRODUCT TRANSFUSION
     Dosage: UNK
     Route: 065
  14. DILAUDID [Concomitant]
     Indication: PAIN
     Dosage: UNK, 2MG, 2-3 TABLETS PRN
     Route: 065
  15. RED BLOOD CELLS [Concomitant]
     Indication: ANAEMIA MACROCYTIC
     Dosage: UNK
     Route: 042
     Dates: start: 20111001
  16. AMBIEN [Concomitant]
     Indication: SLEEP DISORDER
     Dosage: 10 MG, PRN
     Route: 065
  17. HYDROMORPHONE HCL [Concomitant]
     Indication: PRODUCT USED FOR UNKNOWN INDICATION
     Dosage: 2 MG, BID
     Route: 048
  18. IBUPROFEN TABLETS [Concomitant]
     Indication: PRODUCT USED FOR UNKNOWN INDICATION
     Dosage: 400 MG, Q6 HOURS PRN
     Route: 065
  19. EXALGO [Concomitant]
     Indication: PAIN
     Dosage: 16 MG, UID/QD
     Route: 065
  20. CITALOPRAM HYDROBROMIDE [Concomitant]
     Indication: PRODUCT USED FOR UNKNOWN INDICATION
     Dosage: 20 MG, UID/QD
     Route: 065
  21. ONDANSETRON [Concomitant]
     Indication: NAUSEA
     Dosage: 4 MG, Q 8 HOURS PRN
  22. LIDODERM [Concomitant]
     Indication: PRODUCT USED FOR UNKNOWN INDICATION
     Dosage: UNK, 12 HOURS ON, 12 HOURS OFF UID/QD
     Route: 062

REACTIONS (19)
  - NEUROPATHY PERIPHERAL [None]
  - OFF LABEL USE [None]
  - LYMPHOCYTE COUNT DECREASED [None]
  - THROMBOCYTOPENIA [None]
  - BACK PAIN [None]
  - FATIGUE [None]
  - ABDOMINAL PAIN UPPER [None]
  - CACHEXIA [None]
  - NEOPLASM MALIGNANT [None]
  - BLOOD LACTATE DEHYDROGENASE INCREASED [None]
  - CANCER PAIN [None]
  - DECREASED APPETITE [None]
  - BLOOD BILIRUBIN INCREASED [None]
  - TRANSAMINASES INCREASED [None]
  - IRON DEFICIENCY [None]
  - LYMPHOEDEMA [None]
  - DEHYDRATION [None]
  - SOMNOLENCE [None]
  - TACHYPNOEA [None]
